APPROVED DRUG PRODUCT: RILUZOLE
Active Ingredient: RILUZOLE
Strength: 50MG
Dosage Form/Route: TABLET;ORAL
Application: A204430 | Product #001
Applicant: DAITO PHARMACEUTICALS CO LTD
Approved: Oct 16, 2018 | RLD: No | RS: No | Type: DISCN